FAERS Safety Report 24393530 (Version 1)
Quarter: 2024Q4

REPORT INFORMATION
  Report Type: Spontaneous
  Country: US (occurrence: None)
  Receive Date: 20241003
  Receipt Date: 20241003
  Transmission Date: 20250115
  Serious: Yes (Hospitalization)
  Sender: Public
  Company Number: None

PATIENT
  Sex: Male

DRUGS (3)
  1. PIRFENIDONE [Suspect]
     Active Substance: PIRFENIDONE
     Dosage: OTHER FREQUENCY : THREE TIMES DAILY WITH MEALS;?
     Route: 048
  2. ESBRIET [Concomitant]
     Active Substance: PIRFENIDONE
  3. OXYCODONE [Concomitant]

REACTIONS (2)
  - Pneumonia [None]
  - Therapy interrupted [None]
